FAERS Safety Report 15804034 (Version 2)
Quarter: 2020Q2

REPORT INFORMATION
  Report Type: Spontaneous
  Country: DE (occurrence: DE)
  Receive Date: 20190109
  Receipt Date: 20200429
  Transmission Date: 20200713
  Serious: Yes (Hospitalization)
  Sender: FDA-Public Use
  Company Number: PHHY2018DE196531

PATIENT
  Age: 80 Year
  Sex: Male
  Weight: 77 kg

DRUGS (7)
  1. ABRAXANE [Suspect]
     Active Substance: PACLITAXEL
     Indication: NON-SMALL CELL LUNG CANCER
     Dosage: 100 MILLIGRAM/SQ. METER
     Route: 041
     Dates: start: 20181122, end: 20181129
  2. PALLADON [Concomitant]
     Active Substance: HYDROMORPHONE
     Dosage: 2.6 MILLIGRAM
     Route: 048
     Dates: start: 20181214
  3. CARBOPLATIN. [Suspect]
     Active Substance: CARBOPLATIN
     Indication: NON-SMALL CELL LUNG CANCER
     Dosage: 1.5 MG*MIN/ML
     Route: 041
     Dates: start: 20181122, end: 20181122
  4. CARBOPLATIN. [Suspect]
     Active Substance: CARBOPLATIN
     Indication: NON-SMALL CELL LUNG CANCER
     Dosage: 1.5 MGXMIN/ML
     Route: 041
     Dates: start: 20181122
  5. PALLADON [Concomitant]
     Active Substance: HYDROMORPHONE
     Indication: GENERAL PHYSICAL HEALTH DETERIORATION
     Dosage: 4 MILLIGRAM
     Route: 048
     Dates: start: 20181214
  6. LORAZEPAM. [Concomitant]
     Active Substance: LORAZEPAM
     Indication: ANXIETY
     Dosage: 1 MILLIGRAM
     Route: 048
     Dates: start: 20181214
  7. PALLADON [Concomitant]
     Active Substance: HYDROMORPHONE
     Indication: ARTHRALGIA
     Dosage: 6.6 MG, QD (4+2.6 MG, QD)
     Route: 048
     Dates: start: 20181214

REACTIONS (2)
  - Neutropenia [Not Recovered/Not Resolved]
  - General physical health deterioration [Recovered/Resolved]

NARRATIVE: CASE EVENT DATE: 20181205
